FAERS Safety Report 12544887 (Version 1)
Quarter: 2016Q3

REPORT INFORMATION
  Report Type: Spontaneous
  Country: US (occurrence: US)
  Receive Date: 20160711
  Receipt Date: 20160711
  Transmission Date: 20161109
  Serious: No
  Sender: FDA-Public Use
  Company Number: US-TEVA-672694USA

PATIENT
  Sex: Male
  Weight: 100.33 kg

DRUGS (2)
  1. CARBIDOPA W/LEVODOPA [Concomitant]
     Active Substance: CARBIDOPA\LEVODOPA
     Indication: PARKINSON^S DISEASE
  2. AZILECT [Suspect]
     Active Substance: RASAGILINE MESYLATE
     Indication: PARKINSON^S DISEASE
     Dates: start: 2014

REACTIONS (4)
  - Insomnia [Unknown]
  - Peripheral swelling [Unknown]
  - Radiculopathy [Unknown]
  - Adverse event [Unknown]

NARRATIVE: CASE EVENT DATE: 2015
